FAERS Safety Report 5800211 (Version 27)
Quarter: 2014Q2

REPORT INFORMATION
  Report Type: Spontaneous
  Country: US (occurrence: US)
  Receive Date: 20050520
  Receipt Date: 20140625
  Transmission Date: 20141212
  Serious: Yes (Hospitalization, Other)
  Sender: FDA-Public Use
  Company Number: PHEH2005US01797

PATIENT
  Age: 41 Year
  Sex: Male
  Weight: 97.51 kg

DRUGS (42)
  1. AREDIA [Suspect]
     Indication: OSTEOPOROSIS
     Dosage: 90 MG, QMO
     Dates: start: 19970827, end: 20021010
  2. ZOMETA [Suspect]
     Indication: OSTEOPOROSIS
     Dosage: 4 MG, QMO
     Dates: start: 20021210, end: 20040923
  3. DURAGESIC [Concomitant]
     Dosage: 50 UG, EVERY THREE DAYS
  4. OXYCONTIN [Concomitant]
  5. OXYCODONE [Concomitant]
  6. ALPRAZOLAM [Concomitant]
  7. DIAZEPAM [Concomitant]
  8. HYDROMORPHONE [Concomitant]
  9. DIFLUCAN [Concomitant]
  10. HYDROCODONE W/ACETAMINOPHEN [Concomitant]
  11. ROXICODONE [Concomitant]
  12. AMBIEN [Concomitant]
  13. CARISOPRODOL [Concomitant]
  14. CELEBREX [Concomitant]
  15. VIAGRA [Concomitant]
  16. NEURONTIN [Concomitant]
  17. PREDNISONE [Concomitant]
  18. FAMOTIDINE [Concomitant]
  19. FLUMADINE [Concomitant]
  20. LEVAQUIN [Concomitant]
  21. ANDROGEL [Concomitant]
  22. GUIATUSS A.C. [Concomitant]
  23. RIMANTADINE [Concomitant]
  24. AVELOX [Concomitant]
  25. SOMA [Concomitant]
     Dosage: 300 MG, UNK
  26. VALIUM [Concomitant]
  27. DILAUDID [Concomitant]
     Dosage: 4 MG, BID
  28. PERCOCET [Concomitant]
  29. EFFEXOR [Concomitant]
     Dosage: 1 DF, BID
  30. METHADONE [Concomitant]
     Dosage: 30 MG, TID
  31. METHADONE [Concomitant]
     Dosage: 2 DF, TID
  32. METHADONE [Concomitant]
     Dosage: 50 MG, IN DIVIDED DOSES
  33. ZANAFLEX [Concomitant]
     Dosage: 2 MG, TID
  34. FENTANYL [Concomitant]
  35. BACLOFEN [Concomitant]
     Dosage: 10 MG, TID
  36. PRILOSEC [Concomitant]
  37. NABUMETONE [Concomitant]
  38. MORPHINE SULFATE [Concomitant]
  39. FLEXERIL [Concomitant]
  40. VITAMINS [Concomitant]
  41. ETODOLAC [Concomitant]
     Dosage: 1 DF, BID
     Route: 048
  42. AMOXIL [Concomitant]

REACTIONS (89)
  - Peripheral swelling [Unknown]
  - Erythema [Unknown]
  - Venous occlusion [Unknown]
  - Chronic obstructive pulmonary disease [Unknown]
  - Respiratory failure [Unknown]
  - Cardiac failure congestive [Unknown]
  - Osteonecrosis of jaw [Not Recovered/Not Resolved]
  - Soft tissue disorder [Not Recovered/Not Resolved]
  - Deep vein thrombosis [Unknown]
  - Pulmonary embolism [Unknown]
  - Joint crepitation [Unknown]
  - Pain in jaw [Unknown]
  - Jaw disorder [Unknown]
  - Oral pain [Unknown]
  - Sensitivity of teeth [Unknown]
  - Tooth deposit [Unknown]
  - Arthritis [Unknown]
  - Gingival bleeding [Unknown]
  - Wound dehiscence [Unknown]
  - Impaired healing [Unknown]
  - Bone disorder [Unknown]
  - Osteomyelitis [Unknown]
  - Toothache [Recovered/Resolved]
  - Loose tooth [Unknown]
  - Emphysema [Unknown]
  - Spinal fracture [Unknown]
  - Foramen magnum stenosis [Unknown]
  - Lumbar radiculopathy [Unknown]
  - Pain in extremity [Not Recovered/Not Resolved]
  - Arthralgia [Unknown]
  - Dry mouth [Unknown]
  - Cardiovascular disorder [Unknown]
  - Prothrombin time prolonged [Unknown]
  - Hypoxia [Unknown]
  - Atelectasis [Unknown]
  - Lymphadenopathy mediastinal [Unknown]
  - Intervertebral disc degeneration [Unknown]
  - Osteoporosis [Unknown]
  - Intervertebral disc displacement [Unknown]
  - Spondyloarthropathy [Unknown]
  - Musculoskeletal pain [Unknown]
  - Dyspepsia [Unknown]
  - Back disorder [Unknown]
  - Influenza [Unknown]
  - Osteoarthritis [Unknown]
  - Gait disturbance [Unknown]
  - Hypoaesthesia [Unknown]
  - Coordination abnormal [Unknown]
  - Muscular weakness [Unknown]
  - Musculoskeletal discomfort [Unknown]
  - Hepatomegaly [Unknown]
  - Hepatic steatosis [Unknown]
  - Odontogenic cyst [Unknown]
  - Lymphadenopathy [Unknown]
  - Lung infiltration [Unknown]
  - Postoperative wound complication [Unknown]
  - Ankylosing spondylitis [Unknown]
  - Flatback syndrome [Unknown]
  - Polyp [Unknown]
  - Dental caries [Unknown]
  - Primary sequestrum [Unknown]
  - Chest pain [Unknown]
  - Dyspnoea [Unknown]
  - Sensory disturbance [Unknown]
  - Left ventricular hypertrophy [Unknown]
  - Cardiomegaly [Unknown]
  - Bronchitis [Unknown]
  - Migraine [Unknown]
  - Abdominal pain upper [Unknown]
  - Intervertebral disc protrusion [Unknown]
  - Lordosis [Unknown]
  - Hypertension [Unknown]
  - Intervertebral disc space narrowing [Unknown]
  - Back pain [Unknown]
  - Cough [Unknown]
  - Radicular pain [Unknown]
  - Neck pain [Unknown]
  - Hypercapnia [Unknown]
  - Haematoma [Recovering/Resolving]
  - Pulmonary hypertension [Unknown]
  - Left ventricular end-diastolic pressure increased [Unknown]
  - Bundle branch block right [Unknown]
  - Aortic arteriosclerosis [Unknown]
  - Mitral valve calcification [Unknown]
  - Tricuspid valve incompetence [Unknown]
  - Pericardial effusion [Unknown]
  - Hyperlipidaemia [Unknown]
  - Ecchymosis [Unknown]
  - Tenderness [Recovering/Resolving]
